FAERS Safety Report 19861656 (Version 1)
Quarter: 2021Q3

REPORT INFORMATION
  Report Type: Spontaneous
  Country: NL (occurrence: NL)
  Receive Date: 20210921
  Receipt Date: 20210921
  Transmission Date: 20211014
  Serious: No
  Sender: FDA-Public Use
  Company Number: NL-LUPIN PHARMACEUTICALS INC.-2021-17597

PATIENT
  Age: 42 Year
  Sex: Male

DRUGS (4)
  1. TETRACYCLINE [Suspect]
     Active Substance: TETRACYCLINE
     Indication: CAMPYLOBACTER INFECTION
  2. TETRACYCLINE [Suspect]
     Active Substance: TETRACYCLINE
     Indication: DIARRHOEA
     Dosage: 250 MILLIGRAM
     Route: 065
  3. AZITHROMYCIN ANHYDROUS. [Suspect]
     Active Substance: AZITHROMYCIN ANHYDROUS
     Indication: CAMPYLOBACTER INFECTION
  4. AZITHROMYCIN ANHYDROUS. [Suspect]
     Active Substance: AZITHROMYCIN ANHYDROUS
     Indication: DIARRHOEA
     Dosage: 500 MILLIGRAM, QD
     Route: 065

REACTIONS (1)
  - Drug ineffective [Unknown]
